FAERS Safety Report 7991836-9 (Version None)
Quarter: 2011Q4

REPORT INFORMATION
  Report Type: 
  Country: None (occurrence: None)
  Receive Date: 20111219
  Receipt Date: 20111215
  Transmission Date: 20120403
  Serious: No
  Sender: FDA-Public Use
  Company Number: US-PFIZER INC-2011305937

PATIENT
  Sex: Female

DRUGS (1)
  1. AZITHROMYCIN [Suspect]
     Indication: UPPER RESPIRATORY TRACT INFECTION
     Dosage: UNK
     Dates: start: 20110118, end: 20110101

REACTIONS (6)
  - ADVERSE DRUG REACTION [None]
  - MALAISE [None]
  - ILL-DEFINED DISORDER [None]
  - NAUSEA [None]
  - HEADACHE [None]
  - DIZZINESS [None]
